FAERS Safety Report 8253768-0 (Version None)
Quarter: 2012Q2

REPORT INFORMATION
  Report Type: 
  Country: None (occurrence: None)
  Receive Date: 20120402
  Receipt Date: 20120314
  Transmission Date: 20120825
  Serious: No
  Sender: FDA-Public Use
  Company Number: US-AMGEN-USASP2012016769

PATIENT
  Age: 15 Year
  Sex: Male

DRUGS (1)
  1. ENBREL [Suspect]
     Indication: JUVENILE ARTHRITIS
     Dosage: 25 MG, QWK
     Dates: start: 20120212, end: 20120311

REACTIONS (3)
  - LYMPHOCYTE COUNT INCREASED [None]
  - NEUTROPHIL COUNT DECREASED [None]
  - MEAN CELL VOLUME DECREASED [None]
